FAERS Safety Report 10318697 (Version 2)
Quarter: 2015Q1

REPORT INFORMATION
  Report Type: Other
  Country: US (occurrence: US)
  Receive Date: 20140719
  Receipt Date: 20150320
  Transmission Date: 20150720
  Serious: Yes (Hospitalization, Other)
  Sender: FDA-Public Use
  Company Number: US-GSKPPD-2014GSK018709

PATIENT
  Age: 64 Year
  Sex: Male

DRUGS (7)
  1. CARDIZEM CD [Concomitant]
     Active Substance: DILTIAZEM HYDROCHLORIDE
  2. COREG [Concomitant]
     Active Substance: CARVEDILOL
  3. LASIX [Concomitant]
     Active Substance: FUROSEMIDE
  4. VASOTEC [Concomitant]
     Active Substance: ENALAPRIL MALEATE
  5. MONOKET [Concomitant]
     Active Substance: ISOSORBIDE MONONITRATE
  6. DILTIAZEM [Concomitant]
     Active Substance: DILTIAZEM
  7. AVANDIA [Suspect]
     Active Substance: ROSIGLITAZONE MALEATE
     Indication: DIABETES MELLITUS
     Dosage: AVANDIA WAS NOT LISTED AMONG THE PATIENT^S RECORDS REVIEWED.
     Route: 048

REACTIONS (1)
  - Cardiac failure congestive [Recovered/Resolved]

NARRATIVE: CASE EVENT DATE: 20100707
